APPROVED DRUG PRODUCT: TRILIPIX
Active Ingredient: CHOLINE FENOFIBRATE
Strength: EQ 135MG FENOFIBRIC ACID
Dosage Form/Route: CAPSULE, DELAYED RELEASE;ORAL
Application: N022224 | Product #002
Applicant: ABBVIE INC
Approved: Dec 15, 2008 | RLD: Yes | RS: No | Type: DISCN